FAERS Safety Report 4277832-6 (Version None)
Quarter: 2004Q1

REPORT INFORMATION
  Report Type: 
  Country: None (occurrence: None)
  Receive Date: 20040121
  Receipt Date: 20040112
  Transmission Date: 20041129
  Serious: Yes (Hospitalization)
  Sender: FDA-Public Use
  Company Number: 2004194333NO

PATIENT
  Sex: Male

DRUGS (1)
  1. CELEBREX [Suspect]
     Dosage: 200 MG, QD, ORAL
     Route: 048

REACTIONS (2)
  - GUILLAIN-BARRE SYNDROME [None]
  - SPEECH DISORDER [None]
